FAERS Safety Report 13575211 (Version 1)
Quarter: 2017Q2

REPORT INFORMATION
  Report Type: Spontaneous
  Country: US (occurrence: US)
  Receive Date: 20170523
  Receipt Date: 20170523
  Transmission Date: 20170830
  Serious: No
  Sender: FDA-Public Use
  Company Number: None

PATIENT
  Age: 81 Year
  Sex: Male

DRUGS (1)
  1. ERTAPENEM 1GM MERCK [Suspect]
     Active Substance: ERTAPENEM
     Indication: ABSCESS
     Route: 042
     Dates: start: 20170506, end: 20170519

REACTIONS (2)
  - Hallucination [None]
  - Tremor [None]

NARRATIVE: CASE EVENT DATE: 20170519
